FAERS Safety Report 4533459-X (Version None)
Quarter: 2004Q4

REPORT INFORMATION
  Report Type: 
  Country: None (occurrence: None)
  Receive Date: 20041210
  Receipt Date: 20040203
  Transmission Date: 20050328
  Serious: Yes (Hospitalization)
  Sender: FDA-Public Use
  Company Number: RS004199-USA

PATIENT
  Sex: Male

DRUGS (3)
  1. ACIPHEX [Suspect]
     Dosage: 20 MG, 1 N 1 D, ORAL
     Route: 048
  2. AMPICILLIN [Concomitant]
  3. LEVAQUIN [Concomitant]

REACTIONS (1)
  - NEPHRITIS INTERSTITIAL [None]
